FAERS Safety Report 7322455-5 (Version None)
Quarter: 2011Q1

REPORT INFORMATION
  Report Type: 
  Country: None (occurrence: None)
  Receive Date: 20110301
  Receipt Date: 20110223
  Transmission Date: 20110831
  Serious: Yes (Life-Threatening, Hospitalization, Other)
  Sender: FDA-Public Use
  Company Number: UA-TEVA-XM22-04-261423GER

PATIENT
  Sex: Male
  Weight: 60 kg

DRUGS (6)
  1. XM22 PEG-FILGRASTIM [Suspect]
     Indication: COLONY STIMULATING FACTOR PROPHYLAXIS
     Dosage: BLINDED XM22 6 MG OR PLACEBO
     Route: 058
     Dates: start: 20101129, end: 20101129
  2. ETOPOSIDE [Suspect]
     Indication: NON-SMALL CELL LUNG CANCER
     Route: 041
     Dates: start: 20101101, end: 20101101
  3. XM22 PEG-FILGRASTIM [Suspect]
     Dosage: BLINDED XM22 6 MG OR PLACEBO
     Route: 058
     Dates: start: 20101220, end: 20101220
  4. ETOPOSIDE [Suspect]
     Route: 041
     Dates: start: 20101201, end: 20101201
  5. CISPLATIN [Suspect]
     Route: 041
     Dates: start: 20101201, end: 20101201
  6. CISPLATIN [Suspect]
     Indication: NON-SMALL CELL LUNG CANCER
     Route: 041
     Dates: start: 20101101, end: 20101101

REACTIONS (1)
  - PULMONARY EMBOLISM [None]
